FAERS Safety Report 24391215 (Version 1)
Quarter: 2024Q4

REPORT INFORMATION
  Report Type: Spontaneous
  Country: FR (occurrence: FR)
  Receive Date: 20241003
  Receipt Date: 20241003
  Transmission Date: 20250115
  Serious: Yes (Hospitalization, Other)
  Sender: CELLTRION
  Company Number: None

PATIENT

DRUGS (9)
  1. RITUXIMAB [Suspect]
     Active Substance: RITUXIMAB
     Indication: Hairy cell leukaemia
     Dosage: 600 MG, SINGLE
     Route: 042
     Dates: start: 20230324, end: 20230324
  2. ZELBORAF [Suspect]
     Active Substance: VEMURAFENIB
     Indication: Hairy cell leukaemia
     Dosage: 960 MG, EVERY 1 DAY
     Route: 048
     Dates: start: 20230316, end: 20230510
  3. CHOLECALCIFEROL [Concomitant]
     Active Substance: CHOLECALCIFEROL
     Dosage: 1 DF, MONTHLY
     Route: 048
  4. VALACYCLOVIR HYDROCHLORIDE [Concomitant]
     Active Substance: VALACYCLOVIR HYDROCHLORIDE
     Dosage: 500 MG, QD
     Route: 048
  5. ATOVAQUONE [Concomitant]
     Active Substance: ATOVAQUONE
     Dosage: 2 DF, QD
     Route: 048
     Dates: start: 20221207
  6. PERINDOPRIL [Concomitant]
     Active Substance: PERINDOPRIL
     Dosage: 2 MG, QD
     Route: 048
     Dates: start: 20211108
  7. LANSOPRAZOLE [Concomitant]
     Active Substance: LANSOPRAZOLE
     Dosage: 15 MG, QD
     Route: 048
  8. BISOPROLOL FUMARATE [Concomitant]
     Active Substance: BISOPROLOL FUMARATE
     Dosage: 1.25 MG, QD
     Route: 048
     Dates: start: 20211108
  9. KARDEGIC [Concomitant]
     Active Substance: ASPIRIN DL-LYSINE
     Dosage: 1 DF, QD
     Route: 048
     Dates: start: 20211108

REACTIONS (2)
  - Acute coronary syndrome [Recovered/Resolved]
  - Intentional product use issue [Unknown]

NARRATIVE: CASE EVENT DATE: 20230324
